FAERS Safety Report 11283077 (Version 1)
Quarter: 2015Q3

REPORT INFORMATION
  Report Type: Spontaneous
  Country: US (occurrence: None)
  Receive Date: 20150717
  Receipt Date: 20150717
  Transmission Date: 20151125
  Serious: Yes (Hospitalization)
  Sender: FDA-Public Use
  Company Number: None

PATIENT
  Age: 53 Year
  Sex: Female
  Weight: 86.18 kg

DRUGS (8)
  1. AMLODIPINE BESYLATE. [Concomitant]
     Active Substance: AMLODIPINE BESYLATE
  2. NEXIUM [Concomitant]
     Active Substance: ESOMEPRAZOLE MAGNESIUM
  3. ATENOLOL. [Concomitant]
     Active Substance: ATENOLOL
  4. PREDNISONE. [Concomitant]
     Active Substance: PREDNISONE
  5. GLYBURIDE. [Concomitant]
     Active Substance: GLYBURIDE
  6. BAYER ASPIRIN [Concomitant]
     Active Substance: ASPIRIN
  7. ATORVASTATIN 40 MG [Suspect]
     Active Substance: ATORVASTATIN
     Indication: BLOOD CHOLESTEROL INCREASED
     Route: 048
  8. METFORMIN [Suspect]
     Active Substance: METFORMIN HYDROCHLORIDE
     Indication: DIABETES MELLITUS
     Route: 048

REACTIONS (13)
  - Erythema [None]
  - Pain [None]
  - Rash [None]
  - Blister [None]
  - Pruritus [None]
  - Wound secretion [None]
  - Burning sensation [None]
  - Malaise [None]
  - Pain in extremity [None]
  - Dizziness [None]
  - Drug hypersensitivity [None]
  - Sensory disturbance [None]
  - Arthralgia [None]

NARRATIVE: CASE EVENT DATE: 20150716
